FAERS Safety Report 6693409-7 (Version None)
Quarter: 2010Q2

REPORT INFORMATION
  Report Type: 
  Country: None (occurrence: None)
  Receive Date: 20100423
  Receipt Date: 20100407
  Transmission Date: 20101027
  Serious: Yes (Life-Threatening, Hospitalization)
  Sender: FDA-Public Use
  Company Number: DE-RANBAXY-2010RR-33156

PATIENT
  Age: 69 Year
  Sex: Male
  Weight: 121 kg

DRUGS (8)
  1. RAMIPRIL [Suspect]
     Indication: HYPERTENSION
     Dosage: 5 MG, UNK
     Route: 048
  2. VICTOZA [Suspect]
     Indication: TYPE 2 DIABETES MELLITUS
     Dosage: 6 MG, UNK
     Route: 058
     Dates: start: 20100317, end: 20100317
  3. ASPIRIN [Concomitant]
     Dosage: 1 DF, QD
  4. SIMVASTATIN [Concomitant]
     Dosage: 1 DF, QD
  5. BAYMYCARD RR 10 [Concomitant]
     Dosage: 1 DF, QD
  6. BISOPROLOL 5 [Concomitant]
     Dosage: 1 DF, QD
  7. OMEPRAZOL 20 [Concomitant]
     Dosage: 1 DF, QD
  8. METFORMIN 1000 [Concomitant]
     Dosage: 1.5 DF, UNK

REACTIONS (2)
  - ANGIOEDEMA [None]
  - DRUG INTERACTION [None]
